FAERS Safety Report 5110604-9 (Version None)
Quarter: 2006Q3

REPORT INFORMATION
  Report Type: 
  Country: None (occurrence: None)
  Receive Date: 20060921
  Receipt Date: 20060724
  Transmission Date: 20061208
  Serious: Yes (Hospitalization)
  Sender: FDA-Public Use
  Company Number: JP-ABBOTT-06P-087-0338934-00

PATIENT
  Age: 85 Year
  Sex: Male

DRUGS (5)
  1. LEUPLIN SR FOR INJECTION KIT [Suspect]
     Indication: PROSTATE CANCER STAGE II
     Route: 058
     Dates: start: 20060105
  2. LEUPLIN SR FOR INJECTION KIT [Suspect]
     Route: 058
     Dates: start: 20060406, end: 20060406
  3. LEUPLIN SR FOR INJECTION KIT [Suspect]
     Route: 058
     Dates: start: 20060706, end: 20060706
  4. LEUPLIN SR FOR INJECTION KIT [Suspect]
     Route: 058
     Dates: start: 20050527, end: 20050527
  5. LEUPLIN SR FOR INJECTION KIT [Suspect]
     Route: 058
     Dates: start: 20051208, end: 20051208

REACTIONS (1)
  - RECTAL CANCER [None]
